FAERS Safety Report 15214727 (Version 1)
Quarter: 2018Q3

REPORT INFORMATION
  Report Type: Spontaneous
  Country: US (occurrence: US)
  Receive Date: 20180730
  Receipt Date: 20180730
  Transmission Date: 20181010
  Serious: Yes (Other)
  Sender: FDA-Public Use
  Company Number: US-GLAXOSMITHKLINE-US2018130318

PATIENT
  Sex: Female

DRUGS (2)
  1. BREO ELLIPTA [Suspect]
     Active Substance: FLUTICASONE FUROATE\VILANTEROL TRIFENATATE
     Indication: PRODUCT USED FOR UNKNOWN INDICATION
     Dosage: UNK
     Dates: start: 2016
  2. PREDNISONE. [Suspect]
     Active Substance: PREDNISONE
     Indication: GENERAL PHYSICAL HEALTH DETERIORATION
     Dosage: UNK

REACTIONS (8)
  - Osteoporosis [Unknown]
  - Toxicologic test abnormal [Unknown]
  - Productive cough [Unknown]
  - Biopsy [Unknown]
  - Eosinophilic cellulitis [Unknown]
  - Mitochondrial cytopathy [Unknown]
  - Fatigue [Unknown]
  - Exposure to toxic agent [Unknown]
